FAERS Safety Report 14514620 (Version 3)
Quarter: 2018Q1

REPORT INFORMATION
  Report Type: Spontaneous
  Country: IT (occurrence: IT)
  Receive Date: 20180209
  Receipt Date: 20180221
  Transmission Date: 20180509
  Serious: Yes (Death, Life-Threatening, Other)
  Sender: FDA-Public Use
  Company Number: IT-BAUSCH-BL-2018-003334

PATIENT
  Age: 52 Year
  Sex: Male

DRUGS (4)
  1. COLISTIN [Suspect]
     Active Substance: COLISTIN
     Indication: LIVER ABSCESS
     Route: 065
  2. MEROPENEM. [Suspect]
     Active Substance: MEROPENEM
     Indication: LIVER ABSCESS
     Route: 065
  3. GENTAMICIN. [Suspect]
     Active Substance: GENTAMICIN
     Indication: LIVER ABSCESS
     Route: 065
  4. OXYGEN. [Suspect]
     Active Substance: OXYGEN
     Indication: LIVER ABSCESS
     Dosage: HYPERBARIC OXYGEN
     Route: 065

REACTIONS (1)
  - Drug ineffective [Unknown]
